FAERS Safety Report 15781834 (Version 1)
Quarter: 2019Q1

REPORT INFORMATION
  Report Type: Spontaneous
  Country: DE (occurrence: DE)
  Receive Date: 20190102
  Receipt Date: 20190102
  Transmission Date: 20190417
  Serious: Yes (Other)
  Sender: FDA-Public Use
  Company Number: DE-MYLANLABS-2018M1096584

PATIENT
  Age: 46 Year
  Sex: Female

DRUGS (5)
  1. BONDRONAT                          /01304701/ [Concomitant]
     Active Substance: IBANDRONATE SODIUM
     Indication: METASTASES TO CENTRAL NERVOUS SYSTEM
     Route: 065
  2. TAMOXIFEN [Suspect]
     Active Substance: TAMOXIFEN
     Indication: INTRADUCTAL PROLIFERATIVE BREAST LESION
     Route: 065
  3. BONDRONAT                          /01304701/ [Concomitant]
     Active Substance: IBANDRONATE SODIUM
     Indication: METASTASES TO BONE
  4. FASLODEX [Concomitant]
     Active Substance: FULVESTRANT
     Indication: METASTASES TO CENTRAL NERVOUS SYSTEM
     Route: 065
  5. FASLODEX [Concomitant]
     Active Substance: FULVESTRANT
     Indication: METASTASES TO BONE

REACTIONS (1)
  - Pyoderma gangrenosum [Unknown]
